FAERS Safety Report 6250660-8 (Version None)
Quarter: 2009Q2

REPORT INFORMATION
  Report Type: 
  Country: None (occurrence: None)
  Receive Date: 20090630
  Receipt Date: 20090619
  Transmission Date: 20091009
  Serious: Yes (Life-Threatening, Hospitalization)
  Sender: FDA-Public Use
  Company Number: ES-ELI_LILLY_AND_COMPANY-ES200906005192

PATIENT
  Age: 77 Year
  Sex: Female

DRUGS (7)
  1. FORTEO [Suspect]
     Indication: OSTEOPOROSIS
     Dosage: 20 UG, UNK
     Route: 058
     Dates: end: 20090601
  2. LIPEMOL [Concomitant]
  3. ADIRO [Concomitant]
  4. OMEPRAZOLE [Concomitant]
  5. ACTONEL [Concomitant]
  6. DIAZEPAM [Concomitant]
  7. CALCIUM [Concomitant]

REACTIONS (1)
  - CARDIAC DISORDER [None]
